FAERS Safety Report 6870976-1 (Version None)
Quarter: 2010Q3

REPORT INFORMATION
  Report Type: 
  Country: None (occurrence: None)
  Receive Date: 20100723
  Receipt Date: 20100715
  Transmission Date: 20110219
  Serious: Yes (Other)
  Sender: FDA-Public Use
  Company Number: SZ-ASTRAZENECA-2010SE33198

PATIENT
  Age: 54 Year
  Sex: Female

DRUGS (2)
  1. CRESTOR [Suspect]
     Route: 048
     Dates: start: 20060101, end: 20100101
  2. CRESTOR [Suspect]
     Route: 048
     Dates: start: 20100707

REACTIONS (1)
  - NECROBIOSIS [None]
